FAERS Safety Report 4833394-3 (Version None)
Quarter: 2005Q4

REPORT INFORMATION
  Report Type: 
  Country: None (occurrence: None)
  Receive Date: 20051117
  Receipt Date: 20051104
  Transmission Date: 20060501
  Serious: Yes (Other)
  Sender: FDA-Public Use
  Company Number: 2005-DE-04580GD

PATIENT
  Sex: Male

DRUGS (1)
  1. MORPHINE [Suspect]
     Indication: PAIN
     Dosage: 20 MG, IV
     Route: 042

REACTIONS (3)
  - DELIRIUM [None]
  - HYPERHIDROSIS [None]
  - PYREXIA [None]
